FAERS Safety Report 7275023-8 (Version None)
Quarter: 2011Q1

REPORT INFORMATION
  Report Type: 
  Country: None (occurrence: None)
  Receive Date: 20110202
  Receipt Date: 20110202
  Transmission Date: 20110831
  Serious: No
  Sender: FDA-Public Use
  Company Number: None

PATIENT
  Age: 68 Year
  Sex: Male

DRUGS (6)
  1. VIAGARA [Concomitant]
  2. HYDROXYZINE [Concomitant]
  3. LOSARTAN POTASSIUM [Concomitant]
  4. DEXAMETHASONE [Concomitant]
  5. REVLIMID [Suspect]
     Indication: MULTIPLE MYELOMA
     Dosage: 25MG DAILY ORALLY
     Route: 048
     Dates: start: 20100801, end: 20101201
  6. ARIXTRA [Concomitant]

REACTIONS (2)
  - RASH [None]
  - URTICARIA [None]
